FAERS Safety Report 8486010 (Version 5)
Quarter: 2013Q4

REPORT INFORMATION
  Report Type: Spontaneous
  Country: US (occurrence: US)
  Receive Date: 20120331
  Receipt Date: 20131226
  Transmission Date: 20140711
  Serious: Yes (Life-Threatening, Hospitalization, Other)
  Sender: FDA-Public Use
  Company Number: PHEH2012US001283

PATIENT
  Age: 57 Year
  Sex: Female
  Weight: 115.6 kg

DRUGS (16)
  1. GILENYA (FTY) CAPSULE, 0.5 MG [Suspect]
     Indication: MULTIPLE SCLEROSIS
     Dosage: 0.5 MG, QD
     Route: 048
     Dates: start: 20110901, end: 20111201
  2. FUROSEMIDE (FUROSEMIDE) [Concomitant]
     Dosage: UNK UKN, UNK
  3. BUDEPRION (BUPROPION HYDROCHLORIDE) [Concomitant]
     Dosage: 150MG/12HOURS, UNK
     Route: 048
  4. APO-BACLOFEN (BACLOFEN) [Concomitant]
     Dosage: UNK UKN, UNK
  5. GABAPENTIN (GABAPENTIN) [Concomitant]
     Dosage: 300 MG, UNK
     Route: 048
     Dates: start: 20110301
  6. IMITREX (SUMATRIPTAN SUCCINATE) [Concomitant]
     Dosage: UNK UKN, UNK
  7. AMINOPYRIDINE (FAMPRIDINE) [Concomitant]
     Dosage: 5 MG, UNK
     Dates: start: 20110926
  8. POTASSIUM (POTASSIUM) [Concomitant]
     Dosage: UNK UKN, UNK
  9. FOSAMAX (ALENDRONATE SODIUM) [Concomitant]
     Dosage: 70 MG, UNK
     Route: 048
  10. BACLOFEN (BACLOFEN) [Concomitant]
     Dosage: 10 MG, UNK
     Route: 048
     Dates: start: 20110808
  11. KLOR-CON (POTASSIUM CHLORIDE) [Concomitant]
     Dosage: 20 MEQ, UNK
     Route: 048
  12. ZANAFLEX (TIZANIDINE HYDROCHLORIDE) [Concomitant]
     Dosage: 4 MG, UNK
     Route: 048
  13. VESICARE (SOLIFENACIN) [Concomitant]
     Dosage: 5 MG, UNK
     Route: 048
  14. PHYSIOTHERAPY (NO INGREDIENTS/BUSTANCES) [Concomitant]
  15. TIZANIDINE HYDROCHLORIDE (TIZANIDINE HYDROCHLORIDE) [Concomitant]
     Dosage: 1 DF, QD
     Route: 048
  16. LASIX (FUROSEMIDE) [Concomitant]

REACTIONS (10)
  - Cellulitis [Recovering/Resolving]
  - Oedema [Recovering/Resolving]
  - Oedema peripheral [Unknown]
  - Pseudomonas infection [Recovering/Resolving]
  - Neurogenic bladder [Unknown]
  - Mobility decreased [Unknown]
  - Muscular weakness [Unknown]
  - Urge incontinence [Unknown]
  - Asthenia [Unknown]
  - Drug ineffective [Unknown]
